FAERS Safety Report 4727543-5 (Version None)
Quarter: 2005Q3

REPORT INFORMATION
  Report Type: 
  Country: None (occurrence: None)
  Receive Date: 20050727
  Receipt Date: 20050727
  Transmission Date: 20060218
  Serious: Yes (Hospitalization)
  Sender: FDA-Public Use
  Company Number: None

PATIENT
  Age: 72 Year
  Sex: Male

DRUGS (9)
  1. NAPROSYN [Suspect]
     Dosage: 375MG PO BID
     Route: 048
  2. ENALAPRIL [Suspect]
     Dosage: 5MG PO QD
     Route: 048
  3. BRIMONIDINE TARTRATE [Concomitant]
  4. DIPYRIDAMOLE [Concomitant]
  5. DOZOLAMIDE [Concomitant]
  6. HYDROCHLOROTHIAZIDE [Concomitant]
  7. NAPROXEN [Concomitant]
  8. TRAVAPROST [Concomitant]
  9. METOPROLOL [Concomitant]

REACTIONS (2)
  - BLOOD CREATININE INCREASED [None]
  - BLOOD UREA INCREASED [None]
